FAERS Safety Report 5571333-0 (Version None)
Quarter: 2007Q4

REPORT INFORMATION
  Report Type: 
  Country: None (occurrence: None)
  Receive Date: 20071221
  Receipt Date: 20070904
  Transmission Date: 20080405
  Serious: No
  Sender: FDA-Public Use
  Company Number: A0666071A

PATIENT
  Age: 56 Year
  Sex: Male
  Weight: 89.1 kg

DRUGS (1)
  1. FLUTICASONE PROPIONATE [Suspect]
     Route: 045
     Dates: start: 20070201

REACTIONS (1)
  - DRUG INEFFECTIVE [None]
